FAERS Safety Report 10620089 (Version 1)
Quarter: 2014Q4

REPORT INFORMATION
  Report Type: Spontaneous
  Country: IT (occurrence: IT)
  Receive Date: 20141202
  Receipt Date: 20141202
  Transmission Date: 20150529
  Serious: Yes (Death, Life-Threatening)
  Sender: FDA-Public Use
  Company Number: IT-BAYER-2014-172884

PATIENT
  Age: 80 Year
  Sex: Female
  Weight: 55 kg

DRUGS (10)
  1. CARDIOASPIRIN [Suspect]
     Active Substance: ASPIRIN
     Indication: VASCULAR ENCEPHALOPATHY
     Dosage: 100 MG, DAILY DOSE
     Route: 048
     Dates: start: 20120101, end: 20140613
  2. TACHIPIRINA [Concomitant]
     Active Substance: ACETAMINOPHEN
     Indication: PAIN
     Dosage: 100 MG, DAILY DOSE
     Route: 048
     Dates: start: 20120101, end: 20140613
  3. TRITTICO [Concomitant]
     Active Substance: TRAZODONE HYDROCHLORIDE
     Indication: DEPRESSION
     Dosage: 20 GTT, DAILY DOSE
     Route: 048
     Dates: start: 20120101, end: 20140613
  4. BISOPROLOL FUMARATE. [Concomitant]
     Active Substance: BISOPROLOL FUMARATE
     Indication: HYPERTENSION
     Dosage: 1.25 MG, DAILY DOSE
     Route: 048
     Dates: start: 20120101, end: 20140613
  5. NEXIUM [Concomitant]
     Active Substance: ESOMEPRAZOLE MAGNESIUM
     Indication: PROPHYLAXIS AGAINST GASTROINTESTINAL ULCER
     Dosage: 20 MG, DAILY DOSE
     Route: 048
     Dates: start: 20120101, end: 20140613
  6. DULCOLAX [Concomitant]
     Active Substance: BISACODYL OR DOCUSATE SODIUM
     Indication: CONSTIPATION
     Dosage: 30 MG, UNK
     Route: 054
     Dates: start: 20120101, end: 20140613
  7. LEPONEX [Concomitant]
     Active Substance: CLOZAPINE
     Indication: CONDUCT DISORDER
     Dosage: 50 MG, DAILY DOSE
     Route: 048
     Dates: start: 20140506, end: 20140613
  8. FOLINA [Concomitant]
     Active Substance: FOLIC ACID
     Indication: VITAMIN SUPPLEMENTATION
     Dosage: 25 MG, DAILY DOSE
     Route: 048
     Dates: start: 20120101, end: 20140613
  9. CALCIUM CARBONATE W/COLECALCIFEROL [Concomitant]
     Active Substance: CALCIUM CARBONATE\CHOLECALCIFEROL
     Indication: MINERAL SUPPLEMENTATION
     Dosage: 1 DF, UNK
     Route: 048
     Dates: start: 20120101, end: 20140613
  10. MACROGOL 3350 [Concomitant]
     Active Substance: POLYETHYLENE GLYCOL 3350
     Indication: CONSTIPATION
     Dosage: 13.699 G, DAILY DOSE
     Route: 048
     Dates: start: 20120101, end: 20140613

REACTIONS (2)
  - Cerebral haemorrhage [Fatal]
  - Loss of consciousness [Not Recovered/Not Resolved]

NARRATIVE: CASE EVENT DATE: 20140614
